FAERS Safety Report 10923566 (Version 2)
Quarter: 2015Q2

REPORT INFORMATION
  Report Type: Spontaneous
  Country: US (occurrence: US)
  Receive Date: 20150318
  Receipt Date: 20150526
  Transmission Date: 20150821
  Serious: No
  Sender: FDA-Public Use
  Company Number: US-JNJFOC-20130608942

PATIENT

DRUGS (3)
  1. HALOPERIDOL. [Suspect]
     Active Substance: HALOPERIDOL
     Indication: SCHIZOPHRENIA
     Route: 065
  2. HALOPERIDOL. [Suspect]
     Active Substance: HALOPERIDOL
     Indication: SCHIZOPHRENIA
     Route: 065
  3. HALOPERIDOL. [Suspect]
     Active Substance: HALOPERIDOL
     Indication: SCHIZOPHRENIA
     Route: 065

REACTIONS (17)
  - Anxiety [Unknown]
  - Tremor [Unknown]
  - Agitation [Unknown]
  - Nervousness [Unknown]
  - Insomnia [Unknown]
  - Nausea [Unknown]
  - Weight increased [Unknown]
  - Somnolence [Unknown]
  - Psychotic disorder [Unknown]
  - Dystonia [Unknown]
  - Asthenia [Unknown]
  - Headache [Unknown]
  - Vomiting [Unknown]
  - Salivary hypersecretion [Unknown]
  - Extrapyramidal disorder [Unknown]
  - Dyspepsia [Unknown]
  - Akathisia [Unknown]
